FAERS Safety Report 10597309 (Version 1)
Quarter: 2014Q4

REPORT INFORMATION
  Report Type: Spontaneous
  Country: GB (occurrence: GB)
  Receive Date: 20141121
  Receipt Date: 20141121
  Transmission Date: 20150529
  Serious: Yes (Death, Other)
  Sender: FDA-Public Use
  Company Number: GB-ROCHE-1491734

PATIENT
  Sex: Male

DRUGS (2)
  1. XELODA [Suspect]
     Active Substance: CAPECITABINE
     Indication: GASTRIC CANCER
     Dosage: 1150 MG IN THE MORNING/1150 MG IN THE EVENING
     Route: 065
  2. OMEPRAZOLE. [Concomitant]
     Active Substance: OMEPRAZOLE

REACTIONS (6)
  - Infection [Unknown]
  - Dehydration [Unknown]
  - Hepatic failure [Fatal]
  - Diarrhoea [Fatal]
  - Syncope [Fatal]
  - Renal failure [Fatal]
